FAERS Safety Report 5421762-0 (Version None)
Quarter: 2007Q3

REPORT INFORMATION
  Report Type: 
  Country: None (occurrence: None)
  Receive Date: 20070821
  Receipt Date: 20070810
  Transmission Date: 20080115
  Serious: Yes (Other)
  Sender: FDA-Public Use
  Company Number: BR-PFIZER INC-2007068124

PATIENT
  Sex: Female

DRUGS (4)
  1. CHAMPIX [Suspect]
     Indication: TOBACCO USER
     Route: 048
  2. FRONTAL [Concomitant]
     Route: 048
     Dates: start: 20060501, end: 20070722
  3. ATENOLOL AND CHLORTHALIDONE [Concomitant]
     Route: 048
  4. AAS [Concomitant]
     Route: 048

REACTIONS (2)
  - DRUG TOXICITY [None]
  - IMPAIRED SELF-CARE [None]
